APPROVED DRUG PRODUCT: ENZALUTAMIDE
Active Ingredient: ENZALUTAMIDE
Strength: 40MG
Dosage Form/Route: CAPSULE;ORAL
Application: A209614 | Product #001
Applicant: ACTAVIS LABORATORIES FL INC
Approved: May 14, 2021 | RLD: No | RS: No | Type: DISCN